FAERS Safety Report 16081109 (Version 2)
Quarter: 2019Q2

REPORT INFORMATION
  Report Type: Spontaneous
  Country: IT (occurrence: IT)
  Receive Date: 20190316
  Receipt Date: 20190429
  Transmission Date: 20190711
  Serious: Yes (Life-Threatening)
  Sender: FDA-Public Use
  Company Number: IT-ACCORD-113236

PATIENT
  Age: 86 Year
  Sex: Female
  Weight: 56 kg

DRUGS (1)
  1. ATORVASTATIN/ATORVASTATIN CALCIUM [Suspect]
     Active Substance: ATORVASTATIN CALCIUM
     Indication: CARDIOMYOPATHY ACUTE
     Route: 048
     Dates: start: 20181008, end: 20181015

REACTIONS (2)
  - Rhabdomyolysis [Recovered/Resolved]
  - Aspartate aminotransferase [Recovered/Resolved]

NARRATIVE: CASE EVENT DATE: 20181008
